FAERS Safety Report 9683151 (Version 2)
Quarter: 2013Q4

REPORT INFORMATION
  Report Type: Spontaneous
  Country: US (occurrence: US)
  Receive Date: 20131112
  Receipt Date: 20131118
  Transmission Date: 20140711
  Serious: No
  Sender: FDA-Public Use
  Company Number: US-PFIZER INC-2013318439

PATIENT
  Age: 32 Year
  Sex: Male

DRUGS (2)
  1. INLYTA [Suspect]
     Indication: MALIGNANT URINARY TRACT NEOPLASM
     Dosage: 7 MG, UNK
     Dates: start: 20130118
  2. INLYTA [Suspect]
     Dosage: 7 MG IN MORNING, AND 5 MG IN EVENING
     Dates: start: 201309

REACTIONS (3)
  - Weight decreased [Unknown]
  - Cardiac disorder [Unknown]
  - Blood pressure abnormal [Unknown]
